FAERS Safety Report 8878127 (Version 1)
Quarter: 2012Q4

REPORT INFORMATION
  Report Type: Spontaneous
  Country: US (occurrence: None)
  Receive Date: 20121026
  Receipt Date: 20121026
  Transmission Date: 20130627
  Serious: Yes (Hospitalization, Other)
  Sender: FDA-Public Use
  Company Number: AUR-APL-2012-04545

PATIENT
  Age: 74 Year
  Sex: Female

DRUGS (3)
  1. AMOXICILLIN AND CLAVULANIC ACID [Suspect]
  2. CEFEPIME HCL [Suspect]
     Route: 042
  3. VANCOMYCIN HCL [Suspect]
     Route: 042

REACTIONS (5)
  - Fluid overload [None]
  - Renal failure acute [None]
  - Tubulointerstitial nephritis [None]
  - Eosinophilic pneumonia [None]
  - Drug reaction with eosinophilia and systemic symptoms [None]
